FAERS Safety Report 4621445-0 (Version None)
Quarter: 2005Q2

REPORT INFORMATION
  Report Type: 
  Country: None (occurrence: None)
  Receive Date: 20050317
  Receipt Date: 20041208
  Transmission Date: 20051028
  Serious: Yes (Other)
  Sender: FDA-Public Use
  Company Number: 2004107113

PATIENT
  Age: 57 Year
  Sex: Male
  Weight: 71 kg

DRUGS (11)
  1. VFEND [Suspect]
     Indication: BRONCHOPULMONARY ASPERGILLOSIS
     Dosage: 400 MG (200 MG, 2 IN 1 D), ORAL
     Route: 048
     Dates: start: 20041204
  2. CEFAZOLIN SODIUM [Concomitant]
  3. POTASSIUM ACETATE [Concomitant]
  4. MACROGOL (MACROGOL) [Concomitant]
  5. SERETIDE MITE (FLUTICASONE PROPIONATE, SALMETEROL XINAFOATE) [Concomitant]
  6. ONDANSETRON HCL [Concomitant]
  7. HYDROMORPHONE HCL [Concomitant]
  8. OXYCODONE HYDROCHLORIDE AND ACETAMINOPHEN [Concomitant]
  9. DIPHENHYDRAMINE HCL [Concomitant]
  10. AMPHOTERICIN B [Concomitant]
  11. PROMETHAZINE HYDROCHLORIDE TAB [Concomitant]

REACTIONS (1)
  - HALLUCINATION, VISUAL [None]
